FAERS Safety Report 4566786-0 (Version None)
Quarter: 2005Q1

REPORT INFORMATION
  Report Type: 
  Country: None (occurrence: None)
  Receive Date: 20050201
  Receipt Date: 20020102
  Transmission Date: 20050727
  Serious: Yes (Other)
  Sender: FDA-Public Use
  Company Number: US-BRISTOL-MYERS SQUIBB COMPANY-11714730

PATIENT
  Age: 49 Year
  Sex: Female

DRUGS (4)
  1. STADOL [Suspect]
     Route: 045
  2. AYGESTIN [Concomitant]
  3. CLONAZEPAM [Concomitant]
  4. HYDROCODONE + ACETAMINOPHEN [Concomitant]
     Dosage: DOSING: 5/500 TABLET

REACTIONS (1)
  - DEPENDENCE [None]
